FAERS Safety Report 10706598 (Version 1)
Quarter: 2015Q1

REPORT INFORMATION
  Report Type: Spontaneous
  Country: US (occurrence: None)
  Receive Date: 20150109
  Receipt Date: 20150109
  Transmission Date: 20150721
  Serious: No
  Sender: FDA-Public Use
  Company Number: None

PATIENT
  Age: 54 Year
  Weight: 66.68 kg

DRUGS (1)
  1. ESZOPICLONE 3 MG TEVA [Suspect]
     Active Substance: ESZOPICLONE
     Indication: INSOMNIA
     Dosage: 1-  (3MG) AT BEDTIME FOR SLEEP  AT BEDTIME --
     Dates: start: 20141123, end: 20150107

REACTIONS (4)
  - Therapeutic response changed [None]
  - Frustration [None]
  - Product substitution issue [None]
  - Insomnia [None]

NARRATIVE: CASE EVENT DATE: 20141123
